FAERS Safety Report 23455096 (Version 2)
Quarter: 2025Q3

REPORT INFORMATION
  Report Type: Spontaneous
  Country: EU (occurrence: EU)
  Receive Date: 20240130
  Receipt Date: 20250725
  Transmission Date: 20251020
  Serious: Yes (Hospitalization)
  Sender: TEVA
  Company Number: EU-TEVA-VS-3148212

PATIENT
  Sex: Male
  Weight: 72 kg

DRUGS (1)
  1. CYCLOSPORINE [Suspect]
     Active Substance: CYCLOSPORINE
     Indication: Dermatitis atopic
     Route: 065
     Dates: start: 202209, end: 202306

REACTIONS (3)
  - Skin infection [Unknown]
  - Impetigo [Unknown]
  - Drug ineffective [Unknown]
